FAERS Safety Report 4685862-5 (Version None)
Quarter: 2005Q2

REPORT INFORMATION
  Report Type: 
  Country: None (occurrence: None)
  Receive Date: 20050607
  Receipt Date: 20050607
  Transmission Date: 20051028
  Serious: Yes (Death)
  Sender: FDA-Public Use
  Company Number: None

PATIENT
  Age: 46 Year
  Sex: Male
  Weight: 108.8633 kg

DRUGS (3)
  1. ZIDOVUDINE [Suspect]
     Indication: HIV INFECTION
     Dosage: 1 TAB BID PO
     Route: 048
     Dates: start: 20020111, end: 20020519
  2. LAMIVUDINE [Suspect]
     Indication: HIV INFECTION
     Dosage: 1 TAB BID PO
     Route: 048
     Dates: start: 20020111, end: 20050524
  3. ALBUTEROL [Concomitant]

REACTIONS (9)
  - ABDOMINAL DISTENSION [None]
  - ABDOMINAL TENDERNESS [None]
  - ESCHERICHIA BACTERAEMIA [None]
  - HEPATIC FAILURE [None]
  - HEPATORENAL SYNDROME [None]
  - MYDRIASIS [None]
  - OCULAR ICTERUS [None]
  - PUPIL FIXED [None]
  - UNRESPONSIVE TO PAIN STIMULI [None]
